FAERS Safety Report 8211453-5 (Version None)
Quarter: 2012Q1

REPORT INFORMATION
  Report Type: 
  Country: None (occurrence: None)
  Receive Date: 20120228
  Receipt Date: 20111018
  Transmission Date: 20120608
  Serious: Yes (Hospitalization)
  Sender: FDA-Public Use
  Company Number: RB-33148-2011

PATIENT
  Sex: Female

DRUGS (2)
  1. BUPRENORPHINE [Suspect]
     Indication: DRUG DEPENDENCE
     Dates: end: 20100101
  2. BUPRENORPHINE [Suspect]
     Indication: DRUG DEPENDENCE
     Dates: end: 20110101

REACTIONS (6)
  - MATERNAL EXPOSURE DURING PREGNANCY [None]
  - DRUG WITHDRAWAL SYNDROME [None]
  - VOMITING [None]
  - HYPERHIDROSIS [None]
  - PAIN [None]
  - CHILLS [None]
